FAERS Safety Report 6960289-1 (Version None)
Quarter: 2010Q3

REPORT INFORMATION
  Report Type: 
  Country: None (occurrence: None)
  Receive Date: 20100827
  Receipt Date: 20100818
  Transmission Date: 20110219
  Serious: Yes (Hospitalization, Other)
  Sender: FDA-Public Use
  Company Number: 017468

PATIENT
  Sex: Female

DRUGS (1)
  1. KEPPRA [Suspect]
     Dosage: 250 MG BID ORAL, INTRAVENOUS, NOT OTHERWISE SPECIFIED
     Route: 042

REACTIONS (1)
  - SMALL INTESTINE CARCINOMA [None]
